FAERS Safety Report 15201999 (Version 4)
Quarter: 2022Q2

REPORT INFORMATION
  Report Type: Spontaneous
  Country: DE (occurrence: DE)
  Receive Date: 20180726
  Receipt Date: 20220505
  Transmission Date: 20220721
  Serious: Yes (Death, Other)
  Sender: FDA-Public Use
  Company Number: None

PATIENT
  Sex: Male

DRUGS (14)
  1. LANTUS [Suspect]
     Active Substance: INSULIN GLARGINE
     Route: 065
  2. CANDESARTAN CILEXETIL\HYDROCHLOROTHIAZIDE [Suspect]
     Active Substance: CANDESARTAN CILEXETIL\HYDROCHLOROTHIAZIDE
     Route: 065
  3. APIDRA [Suspect]
     Active Substance: INSULIN GLULISINE
     Route: 065
  4. TAMSULOSIN HYDROCHLORIDE [Suspect]
     Active Substance: TAMSULOSIN HYDROCHLORIDE
     Route: 065
  5. DONEPEZIL HYDROCHLORIDE [Suspect]
     Active Substance: DONEPEZIL HYDROCHLORIDE
     Route: 065
  6. METFORMIN HYDROCHLORIDE [Suspect]
     Active Substance: METFORMIN HYDROCHLORIDE
     Route: 065
  7. LEVOMEPROMAZINE [Suspect]
     Active Substance: LEVOMEPROMAZINE
     Route: 065
  8. TORSEMIDE [Suspect]
     Active Substance: TORSEMIDE
     Route: 065
  9. RISPERDAL [Suspect]
     Active Substance: RISPERIDONE
     Route: 065
  10. FALITHROM [Suspect]
     Active Substance: PHENPROCOUMON
     Route: 065
  11. ALLOPURINOL [Suspect]
     Active Substance: ALLOPURINOL
     Route: 065
  12. BISOPROLOL [Suspect]
     Active Substance: BISOPROLOL
     Route: 065
  13. SIMVASTATIN [Suspect]
     Active Substance: SIMVASTATIN
     Route: 065
  14. SEROQUEL [Suspect]
     Active Substance: QUETIAPINE FUMARATE

REACTIONS (14)
  - Death [Fatal]
  - Gastrointestinal haemorrhage [Unknown]
  - Renal failure [Unknown]
  - Haematoma [Unknown]
  - Urinary incontinence [Unknown]
  - Cognitive disorder [Unknown]
  - Balance disorder [Unknown]
  - Hyperhidrosis [Unknown]
  - Contusion [Unknown]
  - Dizziness [Unknown]
  - Peripheral vascular disorder [Unknown]
  - Blood glucose fluctuation [Unknown]
  - Contraindicated product administered [Unknown]
  - Drug interaction [Unknown]

NARRATIVE: CASE EVENT DATE: 20170101
